FAERS Safety Report 8483391-4 (Version None)
Quarter: 2012Q3

REPORT INFORMATION
  Report Type: 
  Country: None (occurrence: None)
  Receive Date: 20120702
  Receipt Date: 20120628
  Transmission Date: 20120928
  Serious: Yes (Hospitalization, Other)
  Sender: FDA-Public Use
  Company Number: US-JNJFOC-20120600716

PATIENT
  Sex: Male
  Weight: 64.86 kg

DRUGS (12)
  1. XARELTO [Suspect]
     Indication: ATRIAL FIBRILLATION
     Route: 048
     Dates: start: 20120315, end: 20120430
  2. VIMPAT [Concomitant]
     Indication: CONVULSION
  3. VITAMIN D [Concomitant]
  4. FUROSEMIDE [Concomitant]
  5. DIGOXIN [Concomitant]
  6. LEVETIRACETAM [Concomitant]
     Indication: CONVULSION
  7. VITAMIN B COMPLEX CAP [Concomitant]
  8. MESALAMINE [Concomitant]
     Indication: COLITIS
  9. WARFARIN SODIUM [Concomitant]
     Indication: CARDIAC DISORDER
  10. METOPROLOL [Concomitant]
  11. LEVOTHYROXINE SODIUM [Concomitant]
  12. PRASTERONE [Concomitant]

REACTIONS (6)
  - HAEMATOCHEZIA [None]
  - EPISTAXIS [None]
  - SKIN DISCOLOURATION [None]
  - ABNORMAL BEHAVIOUR [None]
  - INTESTINAL HAEMORRHAGE [None]
  - ASTHENIA [None]
